FAERS Safety Report 13297305 (Version 1)
Quarter: 2017Q1

REPORT INFORMATION
  Report Type: Spontaneous
  Country: US (occurrence: US)
  Receive Date: 20170304
  Receipt Date: 20170304
  Transmission Date: 20170428
  Serious: Yes (Other)
  Sender: FDA-Public Use
  Company Number: None

PATIENT
  Age: 30 Year
  Sex: Female
  Weight: 81 kg

DRUGS (2)
  1. OMNIPAQUE [Suspect]
     Active Substance: IOHEXOL
     Indication: COMPUTERISED TOMOGRAM
     Dosage: ?          OTHER FREQUENCY:ONE TIME;?
     Route: 042
     Dates: start: 20170212
  2. PRENATAL VITAMINS [Concomitant]
     Active Substance: VITAMINS

REACTIONS (14)
  - Photophobia [None]
  - Muscle spasms [None]
  - Diarrhoea [None]
  - Nasal congestion [None]
  - Dry eye [None]
  - Nausea [None]
  - Pain in extremity [None]
  - Headache [None]
  - Tinnitus [None]
  - Dysgeusia [None]
  - Chills [None]
  - Decreased appetite [None]
  - Fatigue [None]
  - Musculoskeletal stiffness [None]

NARRATIVE: CASE EVENT DATE: 20170212
